FAERS Safety Report 21340567 (Version 1)
Quarter: 2022Q3

REPORT INFORMATION
  Report Type: Spontaneous
  Country: US (occurrence: US)
  Receive Date: 20220916
  Receipt Date: 20220916
  Transmission Date: 20221027
  Serious: No
  Sender: FDA-Public Use
  Company Number: US-ORGANON-O2209USA000953

PATIENT
  Age: 73 Year
  Sex: Male

DRUGS (3)
  1. REMERON SOLTAB [Suspect]
     Active Substance: MIRTAZAPINE
     Indication: Insomnia
     Dosage: UNK
     Route: 048
     Dates: start: 2012
  2. REMERON SOLTAB [Suspect]
     Active Substance: MIRTAZAPINE
     Dosage: ONE TABLET AT NIGHT WITH 1/2 TABLET OF MIRTAZAPINE
     Route: 048
     Dates: start: 20220909
  3. MIRTAZAPINE [Suspect]
     Active Substance: MIRTAZAPINE
     Indication: Insomnia
     Dosage: ONE TABLET AT NIGHT OF REMERON WITH 1/2 TABLET OF MIRTAZAPINE
     Route: 048
     Dates: start: 20220909

REACTIONS (3)
  - Poor quality sleep [Not Recovered/Not Resolved]
  - Product availability issue [Unknown]
  - Prescribed overdose [Unknown]

NARRATIVE: CASE EVENT DATE: 20220701
